FAERS Safety Report 13582714 (Version 1)
Quarter: 2017Q2

REPORT INFORMATION
  Report Type: Spontaneous
  Country: SE (occurrence: SE)
  Receive Date: 20170525
  Receipt Date: 20170525
  Transmission Date: 20170830
  Serious: Yes (Disabling)
  Sender: FDA-Public Use
  Company Number: SE-ENDO PHARMACEUTICALS INC-2017-002594

PATIENT
  Age: 24 Year
  Sex: Female

DRUGS (1)
  1. AVEED [Suspect]
     Active Substance: TESTOSTERONE UNDECANOATE
     Indication: VULVITIS
     Dosage: 4 ML, UNKNOWN
     Route: 065

REACTIONS (1)
  - Virilism [Not Recovered/Not Resolved]
